FAERS Safety Report 5287954-9 (Version None)
Quarter: 2007Q2

REPORT INFORMATION
  Report Type: 
  Country: None (occurrence: None)
  Receive Date: 20070405
  Receipt Date: 20070328
  Transmission Date: 20071010
  Serious: Yes (Hospitalization)
  Sender: FDA-Public Use
  Company Number: US-JNJFOC-20070307068

PATIENT
  Sex: Female
  Weight: 43.55 kg

DRUGS (8)
  1. FENTANYL TRANSDERMAL SYSTEM [Suspect]
     Indication: PAIN
     Route: 062
  2. OXYCODONE HCL [Concomitant]
     Indication: PAIN
     Route: 048
  3. DILAUDID [Concomitant]
     Indication: PAIN
     Route: 048
  4. REMERON [Concomitant]
     Indication: DEPRESSION
     Route: 048
  5. FEMARA [Concomitant]
     Indication: BREAST CANCER
     Route: 048
  6. SYNTHROID [Concomitant]
     Indication: THYROID DISORDER
     Route: 048
  7. XANAX [Concomitant]
     Indication: ANXIETY
     Route: 048
  8. AMBIEN [Concomitant]
     Indication: SLEEP DISORDER
     Route: 048

REACTIONS (4)
  - APPLICATION SITE DRYNESS [None]
  - APPLICATION SITE ERYTHEMA [None]
  - KNEE DEFORMITY [None]
  - WRONG TECHNIQUE IN DRUG USAGE PROCESS [None]
